FAERS Safety Report 15232126 (Version 1)
Quarter: 2018Q3

REPORT INFORMATION
  Report Type: Report from Study
  Country: BR (occurrence: BR)
  Receive Date: 20180802
  Receipt Date: 20180802
  Transmission Date: 20181010
  Serious: Yes (Hospitalization, Other)
  Sender: FDA-Public Use
  Company Number: BR-BAYER-2017-236559

PATIENT
  Sex: Female
  Weight: 97 kg

DRUGS (36)
  1. ZOFRAN [Concomitant]
     Active Substance: ONDANSETRON HYDROCHLORIDE
     Indication: PREMEDICATION
     Dosage: 8 MG, BID
     Route: 042
     Dates: start: 20180125
  2. OMEPRAZOL [Concomitant]
     Active Substance: OMEPRAZOLE
     Indication: ABDOMINAL PAIN UPPER
     Dosage: 40 MG, ONCE
     Route: 042
     Dates: start: 20180622, end: 20180622
  3. ADDITIONAL STUDY MEDICATION [Suspect]
     Active Substance: UNSPECIFIED INGREDIENT
     Indication: B-CELL LYMPHOMA
     Dosage: 375 MG/M2, UNK
     Route: 042
     Dates: start: 20171130, end: 20180525
  4. CORTISONAL [Concomitant]
     Indication: INFUSION RELATED REACTION
     Dosage: 200 MG, ONCE
     Route: 042
     Dates: start: 20171221, end: 20171221
  5. ACETAMINOPHEN. [Concomitant]
     Active Substance: ACETAMINOPHEN
     Indication: PREMEDICATION
     Dosage: 750 MG, ONCE
     Route: 048
     Dates: start: 20171130, end: 20171130
  6. COPANLISIB. [Suspect]
     Active Substance: COPANLISIB
     Indication: B-CELL LYMPHOMA
     Dosage: 45 MG, QD
     Route: 042
     Dates: end: 20180713
  7. CORTISONAL [Concomitant]
     Indication: INFUSION RELATED REACTION
     Dosage: 200 MG, ONCE
     Route: 042
     Dates: start: 20171130, end: 20171130
  8. POLARAMINE [Concomitant]
     Active Substance: DEXCHLORPHENIRAMINE MALEATE
     Indication: HYPERHIDROSIS
  9. DIPHENHYDRAMIN [Concomitant]
     Active Substance: DIPHENHYDRAMINE
     Indication: PREMEDICATION
     Dosage: 25 MG, ONCE
     Route: 042
     Dates: start: 20171214, end: 20171214
  10. DIPHENHYDRAMIN [Concomitant]
     Active Substance: DIPHENHYDRAMINE
     Indication: PREMEDICATION
     Dosage: 25 MG, ONCE
     Route: 042
     Dates: start: 20180125
  11. METFORMIN [Concomitant]
     Active Substance: METFORMIN HYDROCHLORIDE
     Indication: PREMEDICATION
     Dosage: 500 MG, BID
     Route: 048
     Dates: start: 20171207, end: 20171207
  12. METFORMIN [Concomitant]
     Active Substance: METFORMIN HYDROCHLORIDE
     Indication: HYPERGLYCAEMIA
     Dosage: 1000 MG, QD
     Route: 048
     Dates: start: 20171214, end: 20171214
  13. POLARAMINE [Concomitant]
     Active Substance: DEXCHLORPHENIRAMINE MALEATE
     Indication: INFUSION RELATED REACTION
     Dosage: 6 MG, ONCE
     Route: 048
     Dates: start: 20171130, end: 20171130
  14. CITALOPRAM [Concomitant]
     Active Substance: CITALOPRAM HYDROBROMIDE
     Indication: DEPRESSION
     Dosage: 20 MG, QD
     Route: 048
     Dates: start: 2015, end: 20180329
  15. ZOFRAN [Concomitant]
     Active Substance: ONDANSETRON HYDROCHLORIDE
     Indication: VOMITING
     Dosage: 8 MG, BID
     Route: 042
     Dates: start: 20171207, end: 20171207
  16. ZOFRAN [Concomitant]
     Active Substance: ONDANSETRON HYDROCHLORIDE
     Indication: PREMEDICATION
     Dosage: 8 MG, BID
     Route: 042
     Dates: start: 20171221, end: 20171221
  17. CORTISONAL [Concomitant]
     Indication: CHEST PAIN
     Dosage: 200 MG, ONCE
     Route: 042
     Dates: start: 20171207, end: 20171207
  18. ACETAMINOPHEN. [Concomitant]
     Active Substance: ACETAMINOPHEN
     Indication: PREMEDICATION
     Dosage: 750 MG, ONCE
     Route: 048
     Dates: start: 20171221, end: 20171221
  19. ZOFRAN [Concomitant]
     Active Substance: ONDANSETRON HYDROCHLORIDE
     Indication: PREMEDICATION
     Dosage: 8 MG, BID
     Route: 042
     Dates: start: 20171214, end: 20171214
  20. COPANLISIB. [Suspect]
     Active Substance: COPANLISIB
     Indication: B-CELL LYMPHOMA
     Dosage: 60 MG, OW
     Route: 042
     Dates: start: 20171130
  21. CORTISONAL [Concomitant]
     Indication: INFUSION RELATED REACTION
     Dosage: 200 MG, ONCE
     Route: 042
     Dates: start: 20180125
  22. ACETAMINOPHEN. [Concomitant]
     Active Substance: ACETAMINOPHEN
     Indication: PREMEDICATION
     Dosage: 750 MG, ONCE
     Route: 048
     Dates: start: 20171207, end: 20171207
  23. DIPHENHYDRAMIN [Concomitant]
     Active Substance: DIPHENHYDRAMINE
     Indication: PREMEDICATION
     Dosage: 25 MG, ONCE
     Route: 042
     Dates: start: 20171221, end: 20171221
  24. METFORMIN [Concomitant]
     Active Substance: METFORMIN HYDROCHLORIDE
     Indication: PROPHYLAXIS
     Dosage: 1000 MG, BID
     Route: 048
     Dates: start: 20171221
  25. DULOXETINE. [Concomitant]
     Active Substance: DULOXETINE
     Indication: DEPRESSION
     Dosage: 60 MG, QD
     Route: 048
     Dates: start: 20180330
  26. OMEPRAZOL [Concomitant]
     Active Substance: OMEPRAZOLE
     Indication: ABDOMINAL PAIN UPPER
     Dosage: 20 MG, QD
     Route: 048
     Dates: start: 20180622
  27. LEVOFLOXACIN. [Concomitant]
     Active Substance: LEVOFLOXACIN
     Indication: UPPER RESPIRATORY TRACT INFECTION
     Dosage: 500 MG, QD
     Route: 048
     Dates: start: 20180623, end: 20180630
  28. NAUSEDRON [Concomitant]
     Active Substance: ONDANSETRON HYDROCHLORIDE
     Indication: NAUSEA
     Dosage: 8 MG, QD
     Route: 042
     Dates: start: 20180723
  29. ACETAMINOPHEN. [Concomitant]
     Active Substance: ACETAMINOPHEN
     Indication: PREMEDICATION
     Dosage: 750 MG, ONCE
     Route: 048
     Dates: start: 20171214, end: 20171214
  30. DIPHENHYDRAMIN [Concomitant]
     Active Substance: DIPHENHYDRAMINE
     Indication: PREMEDICATION
     Dosage: 50 MG, ONCE
     Route: 042
     Dates: start: 20171130, end: 20171130
  31. DIPHENHYDRAMIN [Concomitant]
     Active Substance: DIPHENHYDRAMINE
     Indication: PREMEDICATION
     Dosage: 25 MG, ONCE
     Route: 042
     Dates: start: 20171207, end: 20171207
  32. TYLENOL 8HR [Concomitant]
     Active Substance: ACETAMINOPHEN
     Indication: PREMEDICATION
     Dosage: 750 MG ONCE BEFORE EVERY RITUXIMAB INFUSION
     Route: 048
     Dates: start: 20180125
  33. DIMORF [Concomitant]
     Active Substance: MORPHINE SULFATE
     Indication: PAIN
     Dosage: 1 U, Q4HR
     Route: 048
     Dates: start: 201710, end: 20171215
  34. ZOFRAN [Concomitant]
     Active Substance: ONDANSETRON HYDROCHLORIDE
     Indication: PREMEDICATION
     Dosage: 8 MG, BID
     Route: 042
     Dates: start: 20171130, end: 20171130
  35. TRAMAL [Concomitant]
     Active Substance: TRAMADOL
     Indication: PAIN
     Dosage: 50 MG, TID
     Route: 048
     Dates: start: 20171207
  36. CORTISONAL [Concomitant]
     Indication: PREMEDICATION
     Dosage: 200 MG, ONCE
     Route: 042
     Dates: start: 20171214, end: 20171214

REACTIONS (3)
  - Colitis [Recovering/Resolving]
  - Syncope [Recovered/Resolved]
  - Hyperglycaemia [Recovered/Resolved]

NARRATIVE: CASE EVENT DATE: 20171130
